FAERS Safety Report 8402051-9 (Version None)
Quarter: 2012Q2

REPORT INFORMATION
  Report Type: 
  Country: None (occurrence: None)
  Receive Date: 20120601
  Receipt Date: 20120529
  Transmission Date: 20120825
  Serious: Yes (Death)
  Sender: FDA-Public Use
  Company Number: TN-SANOFI-AVENTIS-2012SA038101

PATIENT
  Age: 69 Year
  Sex: Female

DRUGS (10)
  1. INSULATARD NPH HUMAN [Concomitant]
     Route: 058
     Dates: end: 20120304
  2. CANDESARTAN CILEXETIL [Concomitant]
     Route: 048
     Dates: end: 20120304
  3. INSULIN [Concomitant]
     Route: 048
     Dates: end: 20120304
  4. PLAVIX [Suspect]
     Indication: MYOCARDIAL INFARCTION
     Route: 048
     Dates: start: 20110910, end: 20120304
  5. FAMODINE [Concomitant]
     Route: 048
     Dates: end: 20120304
  6. LASIX [Concomitant]
     Route: 048
     Dates: end: 20120304
  7. ASPEGIC 1000 [Concomitant]
     Route: 048
     Dates: end: 20120304
  8. LESCOL [Concomitant]
     Route: 048
     Dates: end: 20120304
  9. PLAVIX [Suspect]
     Route: 048
     Dates: start: 20110910, end: 20120304
  10. CORVASAL [Concomitant]
     Route: 058
     Dates: end: 20120304

REACTIONS (2)
  - ISCHAEMIC STROKE [None]
  - ARRHYTHMIA [None]
